FAERS Safety Report 5355271-4 (Version None)
Quarter: 2007Q2

REPORT INFORMATION
  Report Type: 
  Country: None (occurrence: None)
  Receive Date: 20070611
  Receipt Date: 20070529
  Transmission Date: 20071010
  Serious: Yes (Death)
  Sender: FDA-Public Use
  Company Number: S06-USA-02936-02

PATIENT
  Age: 24 Year
  Sex: Male

DRUGS (1)
  1. LEXAPRO [Suspect]
     Dates: start: 20040701, end: 20040724

REACTIONS (7)
  - ANXIETY [None]
  - COMPLETED SUICIDE [None]
  - DISCOMFORT [None]
  - FEELING ABNORMAL [None]
  - INJURY ASPHYXIATION [None]
  - NERVOUSNESS [None]
  - PALPITATIONS [None]
